FAERS Safety Report 13091723 (Version 1)
Quarter: 2017Q1

REPORT INFORMATION
  Report Type: Spontaneous
  Country: US (occurrence: US)
  Receive Date: 20170104
  Receipt Date: 20170104
  Transmission Date: 20170428
  Serious: No
  Sender: FDA-Public Use
  Company Number: None

PATIENT
  Age: 64 Year
  Sex: Male

DRUGS (1)
  1. ZEPATIER [Suspect]
     Active Substance: ELBASVIR\GRAZOPREVIR
     Indication: CIRRHOSIS ALCOHOLIC

REACTIONS (3)
  - Feeling abnormal [None]
  - Anaemia [None]
  - Memory impairment [None]

NARRATIVE: CASE EVENT DATE: 20170104
